FAERS Safety Report 9347182 (Version 4)
Quarter: 2013Q4

REPORT INFORMATION
  Report Type: Report from Study
  Country: DE (occurrence: DE)
  Receive Date: 20130613
  Receipt Date: 20131009
  Transmission Date: 20140711
  Serious: Yes (Death, Hospitalization)
  Sender: FDA-Public Use
  Company Number: DE-CELGENEUS-062-C4047-13053712

PATIENT
  Age: 58 Year
  Sex: Female

DRUGS (4)
  1. CC-4047 [Suspect]
     Indication: PLASMA CELL MYELOMA
     Dosage: 4 MILLIGRAM
     Route: 048
     Dates: start: 20121221, end: 20130117
  2. CC-4047 [Suspect]
     Dosage: 4 MILLIGRAM
     Route: 048
     Dates: start: 20130510, end: 20130526
  3. DEXAMETHASONE [Suspect]
     Indication: PLASMA CELL MYELOMA
     Route: 048
     Dates: start: 20121221, end: 20130117
  4. DEXAMETHASONE [Suspect]
     Route: 048
     Dates: start: 20130510, end: 20130526

REACTIONS (1)
  - Pneumonia [Fatal]
